FAERS Safety Report 13675811 (Version 1)
Quarter: 2017Q2

REPORT INFORMATION
  Report Type: Spontaneous
  Country: US (occurrence: US)
  Receive Date: 20170620
  Receipt Date: 20170620
  Transmission Date: 20170830
  Serious: Yes (Life-Threatening, Disabling)
  Sender: FDA-Public Use
  Company Number: None

PATIENT
  Age: 60 Year
  Sex: Male
  Weight: 76.5 kg

DRUGS (6)
  1. KLONOPIN [Suspect]
     Active Substance: CLONAZEPAM
     Indication: ANXIETY
     Route: 048
     Dates: start: 19890601, end: 20130203
  2. FISH OIL [Concomitant]
     Active Substance: FISH OIL
  3. MCT OIL [Concomitant]
  4. VITAMIN D3 [Concomitant]
     Active Substance: CHOLECALCIFEROL
  5. VITAMIN B COMPLEX [Concomitant]
     Active Substance: CYANOCOBALAMIN\DEXPANTHENOL\NIACINAMIDE\PYRIDOXINE HYDROCHLORIDE\RIBOFLAVIN 5^-PHOSPHATE SODIUM\THIAMINE HYDROCHLORIDE\VITAMIN B COMPLEX
  6. PROBIOTIC [Concomitant]
     Active Substance: PROBIOTICS NOS

REACTIONS (11)
  - Emotional disorder [None]
  - Drug use disorder [None]
  - Personality disorder [None]
  - Brain injury [None]
  - Depersonalisation/derealisation disorder [None]
  - Impaired quality of life [None]
  - Apathy [None]
  - Mental impairment [None]
  - Tardive dyskinesia [None]
  - Head discomfort [None]
  - Insomnia [None]

NARRATIVE: CASE EVENT DATE: 20100813
